FAERS Safety Report 11969002 (Version 1)
Quarter: 2016Q1

REPORT INFORMATION
  Report Type: Spontaneous
  Country: US (occurrence: None)
  Receive Date: 20160127
  Receipt Date: 20160127
  Transmission Date: 20160526
  Serious: Yes (Hospitalization)
  Sender: FDA-Public Use
  Company Number: None

PATIENT
  Age: 37 Year
  Sex: Male
  Weight: 125.19 kg

DRUGS (1)
  1. ZYPREXA [Suspect]
     Active Substance: OLANZAPINE
     Route: 048

REACTIONS (6)
  - Weight increased [None]
  - Dry mouth [None]
  - Dyspepsia [None]
  - Dizziness [None]
  - Increased appetite [None]
  - Somnolence [None]

NARRATIVE: CASE EVENT DATE: 20160126
